FAERS Safety Report 6617002-7 (Version None)
Quarter: 2010Q1

REPORT INFORMATION
  Report Type: 
  Country: None (occurrence: None)
  Receive Date: 20100302
  Receipt Date: 20071105
  Transmission Date: 20100710
  Serious: Yes (Hospitalization)
  Sender: FDA-Public Use
  Company Number: 2009-2625

PATIENT
  Sex: Male

DRUGS (5)
  1. APO-GO PFS (APO-GO) (APOMORPHINE HYDROCHLORIDE) (APOMORPHINE HYDROCHLO [Suspect]
     Indication: DRUG USE FOR UNKNOWN INDICATION
     Dosage: SUBCUTANEOUS
     Route: 058
     Dates: start: 20060701
  2. APO-GO AMPOULES (APO-GO) (APOMORPHINE HYDROCHLORIDE) (APOMORPHINE HYDR [Suspect]
     Indication: DRUG USE FOR UNKNOWN INDICATION
     Dosage: SUBCUTANEOUS
     Route: 058
     Dates: start: 20041001, end: 20060701
  3. SINEMET (SINEMET) (CARBIDOPA, LEVODOPA) [Concomitant]
  4. SINEMET PLUS (SINEMET) (CARBIDOPA, LEVODOPA) [Concomitant]
  5. AMANTADINE (AMANTADINE) (AMANTADINE) [Concomitant]

REACTIONS (3)
  - CEREBRAL INFARCTION [None]
  - FALL [None]
  - NO THERAPEUTIC RESPONSE [None]
